FAERS Safety Report 4641579-4 (Version None)
Quarter: 2005Q2

REPORT INFORMATION
  Report Type: 
  Country: None (occurrence: None)
  Receive Date: 20050420
  Receipt Date: 20050406
  Transmission Date: 20051028
  Serious: Yes (Other)
  Sender: FDA-Public Use
  Company Number: USA050392875

PATIENT
  Age: 70 Year
  Sex: Female

DRUGS (4)
  1. FORTEO [Suspect]
     Indication: OSTEOPOROSIS
     Dates: start: 20040212
  2. CALTRATE [Concomitant]
  3. VITAMINS [Concomitant]
  4. PREVACID [Concomitant]

REACTIONS (6)
  - BREAST CANCER STAGE I [None]
  - BREAST MICROCALCIFICATION [None]
  - FIBROCYSTIC BREAST DISEASE [None]
  - NAEVUS CELL NAEVUS [None]
  - PHARMACEUTICAL PRODUCT COMPLAINT [None]
  - SEBORRHOEIC KERATOSIS [None]
